FAERS Safety Report 6264182 (Version 10)
Quarter: 2013Q2

REPORT INFORMATION
  Report Type: Spontaneous
  Country: JP (occurrence: JP)
  Receive Date: 20070319
  Receipt Date: 20130425
  Transmission Date: 20140414
  Serious: Yes (Disabling, Other)
  Sender: FDA-Public Use
  Company Number: PHBS2006JP08595

PATIENT
  Age: 4 Month
  Sex: Male
  Weight: 7 kg

DRUGS (4)
  1. ZADITEN [Suspect]
     Indication: DERMATITIS ATOPIC
     Dosage: 1.5 MG/DAY
     Route: 048
     Dates: start: 20060601, end: 20060605
  2. ZADITEN [Suspect]
     Indication: PRURITUS
  3. MIYA-BM [Suspect]
     Route: 048
  4. KETOTIFEN [Concomitant]

REACTIONS (17)
  - Toxic encephalopathy [Unknown]
  - Somnolence [Recovering/Resolving]
  - Agitation [Recovering/Resolving]
  - Pyrexia [Recovering/Resolving]
  - Areflexia [Unknown]
  - Speech disorder [Unknown]
  - Growth retardation [Unknown]
  - Mental retardation [Unknown]
  - Diarrhoea [Unknown]
  - Convulsion [Unknown]
  - Tremor [Unknown]
  - Crying [Unknown]
  - Epilepsy [Unknown]
  - Motor developmental delay [Not Recovered/Not Resolved]
  - Irritability [Unknown]
  - Drug dispensing error [Unknown]
  - Overdose [Unknown]
